FAERS Safety Report 15190002 (Version 4)
Quarter: 2018Q3

REPORT INFORMATION
  Report Type: Spontaneous
  Country: DE (occurrence: DE)
  Receive Date: 20180724
  Receipt Date: 20180827
  Transmission Date: 20181010
  Serious: Yes (Death, Hospitalization, Other)
  Sender: FDA-Public Use
  Company Number: PHHY2018DE053451

PATIENT
  Age: 78 Year
  Sex: Female
  Weight: 69 kg

DRUGS (18)
  1. ENAPLUS [Concomitant]
     Indication: HYPERTENSION
     Dosage: 1 DF, QD
     Route: 048
     Dates: start: 200904
  2. ENAPLUS [Concomitant]
     Indication: HYPERTENSION
  3. L?THYROXIN [Concomitant]
     Active Substance: LEVOTHYROXINE SODIUM
     Indication: HYPOTHYROIDISM
     Dosage: 1 DF, QD
     Route: 048
     Dates: start: 201212
  4. LERCANIDIPINE [Concomitant]
     Active Substance: LERCANIDIPINE
     Indication: HYPERTENSION
     Dosage: 10 MG, QD
     Route: 048
     Dates: start: 201609
  5. LERCANIDIPINE [Concomitant]
     Active Substance: LERCANIDIPINE
     Dosage: UNK
  6. SANDIMMUN [Interacting]
     Active Substance: CYCLOSPORINE
     Dosage: 1 DF, QD
     Route: 048
     Dates: start: 201203, end: 20170123
  7. SANDIMMUN [Suspect]
     Active Substance: CYCLOSPORINE
     Indication: MYELODYSPLASTIC SYNDROME
     Dosage: 1 DF, QD
     Route: 048
     Dates: start: 201009, end: 201112
  8. TORASEMID [Concomitant]
     Active Substance: TORSEMIDE
     Dosage: 1 DF, QD
     Route: 048
  9. LERCANIDIPINE [Concomitant]
     Active Substance: LERCANIDIPINE
     Dosage: UNK
  10. TORASEMID [Concomitant]
     Active Substance: TORSEMIDE
     Indication: CARDIAC FAILURE
     Dosage: 10 MG, QD
     Route: 048
     Dates: start: 201712, end: 201712
  11. XARELTO [Interacting]
     Active Substance: RIVAROXABAN
     Indication: ATRIAL FIBRILLATION
     Dosage: 1 DF, QD
     Route: 048
     Dates: start: 20170102, end: 20170127
  12. XARELTO [Interacting]
     Active Substance: RIVAROXABAN
     Dosage: 0.5 DF, QD
     Route: 048
     Dates: start: 20170128
  13. METOHEXAL [Concomitant]
     Active Substance: METOPROLOL SUCCINATE
     Indication: ARRHYTHMIA
     Dosage: 1 DF, BID
     Route: 048
     Dates: start: 201404
  14. METOHEXAL [Concomitant]
     Active Substance: METOPROLOL SUCCINATE
     Dosage: UNK
  15. LERCANIDIPINE [Concomitant]
     Active Substance: LERCANIDIPINE
     Dosage: UNK
  16. METOHEXAL [Concomitant]
     Active Substance: METOPROLOL SUCCINATE
     Indication: HYPERTENSION
     Dosage: 47.5 MG, Q12H
     Route: 048
     Dates: start: 201404
  17. ENAPLUS [Concomitant]
     Indication: HYPERTENSION
  18. APIXABAN [Concomitant]
     Active Substance: APIXABAN
     Indication: ATRIAL FIBRILLATION
     Route: 065

REACTIONS (9)
  - Leukopenia [Unknown]
  - General physical health deterioration [Unknown]
  - Blood urea increased [Unknown]
  - Drug interaction [Unknown]
  - Death [Fatal]
  - Pyrexia [Unknown]
  - Blood creatinine increased [Unknown]
  - Thrombocytopenia [Unknown]
  - Dyspnoea [Unknown]

NARRATIVE: CASE EVENT DATE: 20170112
